FAERS Safety Report 15928606 (Version 2)
Quarter: 2020Q3

REPORT INFORMATION
  Report Type: Spontaneous
  Country: US (occurrence: US)
  Receive Date: 20190206
  Receipt Date: 20200807
  Transmission Date: 20201102
  Serious: No
  Sender: FDA-Public Use
  Company Number: US-SA-2019SA026894

PATIENT

DRUGS (1)
  1. ZANTAC 150 (RANITIDINE HYDROCHLORIDE) [Suspect]
     Active Substance: RANITIDINE HYDROCHLORIDE
     Indication: GASTROOESOPHAGEAL REFLUX DISEASE
     Dosage: 150 MG, BID
     Route: 065
     Dates: start: 20190122, end: 20190124

REACTIONS (1)
  - Renal pain [Unknown]
